FAERS Safety Report 8560531-X (Version None)
Quarter: 2012Q3

REPORT INFORMATION
  Report Type: 
  Country: None (occurrence: None)
  Receive Date: 20120802
  Receipt Date: 20111108
  Transmission Date: 20120928
  Serious: Yes (Hospitalization)
  Sender: FDA-Public Use
  Company Number: US-BAYER-200932821NA

PATIENT
  Age: 27 Year
  Sex: Female
  Weight: 91 kg

DRUGS (10)
  1. NICODERM [Concomitant]
  2. ZOLOFT [Concomitant]
     Dosage: 100 MG (DAILY DOSE), QD, UNKNOWN
     Route: 065
  3. DEPO-MEDROL [Concomitant]
  4. SERTRALINE HYDROCHLORIDE [Concomitant]
  5. YASMIN [Suspect]
     Route: 048
     Dates: start: 20070301, end: 20071001
  6. FLUOXETINE HCL [Concomitant]
  7. LAMICTAL [Concomitant]
     Dosage: 100 MG (DAILY DOSE), QD, UNKNOWN
     Route: 065
  8. LEXAPRO [Concomitant]
  9. PROMETHAZINE [Concomitant]
  10. YASMIN [Suspect]
     Indication: ORAL CONTRACEPTION
     Dosage: UNK UNK, QD
     Route: 048
     Dates: start: 20050201, end: 20070101

REACTIONS (9)
  - SYNCOPE [None]
  - DYSPNOEA [None]
  - ASTHENIA [None]
  - PULMONARY INFARCTION [None]
  - INJURY [None]
  - PAIN [None]
  - DIZZINESS [None]
  - PULMONARY EMBOLISM [None]
  - PRESYNCOPE [None]
